FAERS Safety Report 5193881-8 (Version None)
Quarter: 2006Q4

REPORT INFORMATION
  Report Type: 
  Country: None (occurrence: None)
  Receive Date: 20061221
  Receipt Date: 20061213
  Transmission Date: 20070319
  Serious: Yes (Hospitalization)
  Sender: FDA-Public Use
  Company Number: 233335

PATIENT
  Age: 61 Year
  Sex: Female
  Weight: 86.2 kg

DRUGS (2)
  1. AVASTIN [Suspect]
     Indication: OVARIAN CANCER
     Dosage: 875 MG, DAYS 1 + 15
     Dates: start: 20060606, end: 20061030
  2. GEMCITABINE [Suspect]
     Indication: OVARIAN CANCER
     Dosage: 1600 MG, DAYS 1+15
     Dates: start: 20060606, end: 20061030

REACTIONS (4)
  - CHEST DISCOMFORT [None]
  - MALIGNANT HYPERTENSION [None]
  - NEUROPATHY PERIPHERAL [None]
  - RENAL FAILURE [None]
